FAERS Safety Report 11629522 (Version 3)
Quarter: 2017Q3

REPORT INFORMATION
  Report Type: Spontaneous
  Country: US (occurrence: US)
  Receive Date: 20151014
  Receipt Date: 20170828
  Transmission Date: 20171127
  Serious: Yes (Hospitalization, Other)
  Sender: FDA-Public Use
  Company Number: US-BAYER-2015-442742

PATIENT
  Age: 29 Year
  Sex: Female
  Weight: 54.42 kg

DRUGS (1)
  1. MIRENA [Suspect]
     Active Substance: LEVONORGESTREL
     Indication: CONTRACEPTION
     Dosage: 20 MCG/24HR, CONT
     Route: 015
     Dates: start: 20101213, end: 20121018

REACTIONS (14)
  - Emotional distress [None]
  - Fear [None]
  - Uterine perforation [None]
  - Device dislocation [None]
  - Anxiety [None]
  - Depression [None]
  - Injury [None]
  - Device issue [None]
  - Pain [None]
  - Stress [None]
  - Psychological trauma [None]
  - Post procedural discomfort [None]
  - Vaginal infection [None]
  - Device failure [None]

NARRATIVE: CASE EVENT DATE: 201110
